FAERS Safety Report 10309978 (Version 1)
Quarter: 2014Q3

REPORT INFORMATION
  Report Type: Spontaneous
  Country: US (occurrence: None)
  Receive Date: 20140715
  Receipt Date: 20140715
  Transmission Date: 20150326
  Serious: Yes (Other)
  Sender: FDA-Public Use
  Company Number: None

PATIENT
  Age: 52 Year
  Sex: Male
  Weight: 83.92 kg

DRUGS (1)
  1. CYMBALTA [Suspect]
     Active Substance: DULOXETINE HYDROCHLORIDE
     Indication: NEUROPATHY PERIPHERAL
     Dosage: TAPER, TAKEN BY MOUTH
     Dates: start: 20130515, end: 20140709

REACTIONS (5)
  - Suicidal ideation [None]
  - Hallucination [None]
  - Nightmare [None]
  - Insomnia [None]
  - Psychotic disorder [None]

NARRATIVE: CASE EVENT DATE: 20140515
